FAERS Safety Report 19432795 (Version 1)
Quarter: 2021Q2

REPORT INFORMATION
  Report Type: Spontaneous
  Country: GB (occurrence: GB)
  Receive Date: 20210618
  Receipt Date: 20210618
  Transmission Date: 20210717
  Serious: Yes (Other)
  Sender: FDA-Public Use
  Company Number: GB-TEVA-2021-GB-1923117

PATIENT
  Age: 31 Year
  Sex: Female
  Weight: 96 kg

DRUGS (8)
  1. FLUCLOXACILLIN [Concomitant]
     Active Substance: FLUCLOXACILLIN
     Dosage: 4 DOSAGE FORMS DAILY;
     Dates: start: 20210426, end: 20210503
  2. LANSOPRAZOLE. [Concomitant]
     Active Substance: LANSOPRAZOLE
     Dosage: 1 DOSAGE FORMS DAILY;
     Dates: start: 20201029
  3. LYMECYCLINE [Concomitant]
     Active Substance: LYMECYCLINE
     Dosage: 1 DOSAGE FORMS DAILY;
     Dates: start: 20210511
  4. MICROGYNON [Concomitant]
     Active Substance: ETHINYL ESTRADIOL\LEVONORGESTREL ACETATE
     Dosage: AS DIRECTED, 1 DOSAGE FORMS
     Dates: start: 20210312, end: 20210411
  5. MIRTAZAPINE. [Suspect]
     Active Substance: MIRTAZAPINE
     Indication: DEPRESSED MOOD
     Dosage: 30 MILLIGRAM DAILY; AT NIGHT
     Route: 065
     Dates: start: 20210312
  6. BENZOYL PEROXIDE. [Concomitant]
     Active Substance: BENZOYL PEROXIDE
     Dosage: 1 DOSAGE FORMS DAILY; IN THE EVENING
     Dates: start: 20201029
  7. FENBID [Concomitant]
     Active Substance: IBUPROFEN
     Dosage: 3 DOSAGE FORMS DAILY; AS NEEDED
     Dates: start: 20210604
  8. SERTRALINE [Concomitant]
     Active Substance: SERTRALINE HYDROCHLORIDE
     Dosage: 1 DOSAGE FORMS DAILY;
     Dates: start: 20210518

REACTIONS (2)
  - Lip swelling [Recovered/Resolved]
  - Swelling face [Recovered/Resolved]
